FAERS Safety Report 9629571 (Version 1)
Quarter: 2013Q4

REPORT INFORMATION
  Report Type: Spontaneous
  Country: FR (occurrence: FR)
  Receive Date: 20131017
  Receipt Date: 20131017
  Transmission Date: 20140711
  Serious: Yes (Hospitalization)
  Sender: FDA-Public Use
  Company Number: FR-ROCHE-1288183

PATIENT
  Age: 54 Year
  Sex: Male

DRUGS (3)
  1. COPEGUS [Suspect]
     Indication: HEPATITIS C
     Dosage: 400 MG
     Route: 048
     Dates: start: 20130415, end: 20130710
  2. PEGASYS [Suspect]
     Indication: HEPATITIS C
     Dosage: 180 MCG
     Route: 058
     Dates: start: 20130415, end: 20130710
  3. INCIVO [Suspect]
     Indication: HEPATITIS C
     Dosage: 375 MG
     Route: 048
     Dates: start: 20130415, end: 20130710

REACTIONS (4)
  - Toxic skin eruption [Recovered/Resolved]
  - Pyrexia [Recovered/Resolved]
  - Eosinophilia [Recovered/Resolved]
  - Anaemia [Unknown]
